FAERS Safety Report 22131999 (Version 3)
Quarter: 2023Q2

REPORT INFORMATION
  Report Type: Spontaneous
  Country: US (occurrence: None)
  Receive Date: 20230323
  Receipt Date: 20230609
  Transmission Date: 20230721
  Serious: Yes (Hospitalization, Other)
  Sender: FDA-Public Use
  Company Number: 2023A063211

PATIENT
  Age: 57 Year
  Sex: Female
  Weight: 101.2 kg

DRUGS (3)
  1. PULMICORT FLEXHALER [Suspect]
     Active Substance: BUDESONIDE
     Indication: Asthma
     Dosage: 180 MCG, THREE PUFFS TWICE A DAY
     Route: 055
     Dates: start: 2002
  2. PULMICORT FLEXHALER [Suspect]
     Active Substance: BUDESONIDE
     Indication: Asthma
     Dosage: 180 MCG, TWO PUFFS TWICE A DAY
     Route: 055
  3. PULMICORT FLEXHALER [Suspect]
     Active Substance: BUDESONIDE
     Indication: Asthma
     Dosage: 180 MCG, ONE PUFF TWICE A DAY
     Route: 055
     Dates: start: 202211

REACTIONS (24)
  - Post procedural sepsis [Unknown]
  - Post procedural complication [Not Recovered/Not Resolved]
  - Intestinal obstruction [Unknown]
  - Ileus [Unknown]
  - Uterine cancer [Not Recovered/Not Resolved]
  - Ischaemic stroke [Unknown]
  - Uterine enlargement [Unknown]
  - Vulvovaginal injury [Unknown]
  - Haematoma [Unknown]
  - Diarrhoea [Unknown]
  - Vomiting [Unknown]
  - Chills [Unknown]
  - Pyrexia [Unknown]
  - Hypotension [Unknown]
  - Hypertension [Not Recovered/Not Resolved]
  - Anaemia [Unknown]
  - Infection [Unknown]
  - Dyspnoea [Unknown]
  - Feeling abnormal [Unknown]
  - Coagulopathy [Unknown]
  - Pneumonia [Unknown]
  - Respiratory syncytial virus infection [Unknown]
  - Hypersensitivity [Unknown]
  - Device malfunction [Unknown]

NARRATIVE: CASE EVENT DATE: 20100101
